FAERS Safety Report 8920335 (Version 1)
Quarter: 2012Q4

REPORT INFORMATION
  Report Type: 
  Country: CO (occurrence: CO)
  Receive Date: 20121122
  Receipt Date: 20121122
  Transmission Date: 20130627
  Serious: No
  Sender: FDA-Public Use
  Company Number: PHHY2012CO105973

PATIENT

DRUGS (2)
  1. TASIGNA [Suspect]
     Dosage: 150 mg, UNK
     Route: 048
     Dates: start: 20120628, end: 20121114
  2. LEVOTHYROXIN [Concomitant]
     Indication: HYPOTHYROIDISM

REACTIONS (2)
  - Hepatic enzyme increased [Unknown]
  - Blood cholesterol increased [Unknown]
